FAERS Safety Report 13669363 (Version 1)
Quarter: 2017Q2

REPORT INFORMATION
  Report Type: Spontaneous
  Country: FR (occurrence: FR)
  Receive Date: 20170620
  Receipt Date: 20170620
  Transmission Date: 20170830
  Serious: Yes (Hospitalization)
  Sender: FDA-Public Use
  Company Number: PHHY2017FR085947

PATIENT
  Age: 34 Year
  Sex: Female

DRUGS (5)
  1. MYFORTIC [Suspect]
     Active Substance: MYCOPHENOLATE SODIUM
     Indication: RENAL TRANSPLANT
     Dosage: 4 DF, QD (1.44G IN TOTAL PER DAY)
     Route: 048
     Dates: start: 201703
  2. PRIVIGEN [Suspect]
     Active Substance: HUMAN IMMUNOGLOBULIN G
     Dosage: UNK (2ND CURE)
     Route: 042
     Dates: start: 20170414, end: 20170416
  3. PRIVIGEN [Suspect]
     Active Substance: HUMAN IMMUNOGLOBULIN G
     Dosage: UNK (3RD CURE)
     Route: 042
     Dates: start: 20170505, end: 20170507
  4. PRIVIGEN [Suspect]
     Active Substance: HUMAN IMMUNOGLOBULIN G
     Dosage: 100 MG/ML (10 G), UNK
     Route: 042
     Dates: start: 20170526, end: 20170529
  5. PRIVIGEN [Suspect]
     Active Substance: HUMAN IMMUNOGLOBULIN G
     Indication: RENAL TRANSPLANT
     Dosage: UNK (1ST CURE)
     Route: 042
     Dates: start: 20170324, end: 20170327

REACTIONS (2)
  - Neutropenia [Recovered/Resolved]
  - Throat irritation [Unknown]

NARRATIVE: CASE EVENT DATE: 20170527
